FAERS Safety Report 5500396-3 (Version None)
Quarter: 2007Q4

REPORT INFORMATION
  Report Type: 
  Country: None (occurrence: None)
  Receive Date: 20071024
  Receipt Date: 20071024
  Transmission Date: 20080405
  Serious: Yes (Disabling)
  Sender: FDA-Public Use
  Company Number: None

PATIENT
  Age: 56 Year
  Sex: Male
  Weight: 103.8737 kg

DRUGS (1)
  1. CHANTIX [Suspect]
     Indication: SMOKING CESSATION THERAPY
     Dosage: ORAL; 1.0 MILLIGRAM
     Route: 048
     Dates: start: 20070912, end: 20071031

REACTIONS (6)
  - DEAFNESS [None]
  - FALL [None]
  - LACERATION [None]
  - LOSS OF CONSCIOUSNESS [None]
  - SYNCOPE [None]
  - VISUAL DISTURBANCE [None]
